FAERS Safety Report 9023438 (Version 2)
Quarter: 2013Q1

REPORT INFORMATION
  Report Type: Report from Study
  Country: US (occurrence: US)
  Receive Date: 20130121
  Receipt Date: 20130123
  Transmission Date: 20140127
  Serious: Yes (Hospitalization, Other)
  Sender: FDA-Public Use
  Company Number: US-ABBOTT-13P-163-1035590-00

PATIENT
  Age: 76 Year
  Sex: Female

DRUGS (10)
  1. HUMIRA [Suspect]
     Indication: PSORIASIS
     Dates: start: 2007
  2. PROCARDIA [Suspect]
     Indication: HYPERTENSION
  3. TRAMADOL [Concomitant]
     Indication: PAIN
  4. ASPERCREME [Concomitant]
     Indication: ARTHRITIS
  5. DAVONEX [Concomitant]
     Indication: PSORIASIS
     Route: 061
  6. ONE A DAY [Concomitant]
     Indication: VITAMIN SUPPLEMENTATION
  7. ALPRAZOLAM [Concomitant]
     Indication: ANXIETY
  8. BABY ASPIRIN [Concomitant]
     Indication: PRODUCT USED FOR UNKNOWN INDICATION
  9. NASONEX [Concomitant]
     Indication: HYPERSENSITIVITY
     Dosage: IN EACH NOSTRIL TWICE A DAY
     Route: 045
  10. NEXIUM [Concomitant]
     Indication: GASTROOESOPHAGEAL REFLUX DISEASE

REACTIONS (8)
  - Hernia [Unknown]
  - Lower limb fracture [Not Recovered/Not Resolved]
  - Fall [Unknown]
  - Muscle spasms [Unknown]
  - Nasal disorder [Not Recovered/Not Resolved]
  - Nasal oedema [Unknown]
  - Nasal polyps [Unknown]
  - Device malfunction [Unknown]
